FAERS Safety Report 21727205 (Version 1)
Quarter: 2022Q4

REPORT INFORMATION
  Report Type: Spontaneous
  Country: US (occurrence: US)
  Receive Date: 20221214
  Receipt Date: 20221214
  Transmission Date: 20230113
  Serious: Yes (Other)
  Sender: FDA-Public Use
  Company Number: US-002147023-NVSC2022US286175

PATIENT
  Sex: Female

DRUGS (1)
  1. POLYMYXIN B SULFATE\TRIMETHOPRIM [Suspect]
     Active Substance: POLYMYXIN B SULFATE\TRIMETHOPRIM
     Indication: Conjunctivitis
     Dosage: 1 DOSAGE FORM, Q4H
     Route: 065
     Dates: start: 20221204

REACTIONS (6)
  - Eye pruritus [Unknown]
  - Eyelid irritation [Unknown]
  - Superficial injury of eye [Unknown]
  - Burning sensation [Unknown]
  - Conjunctivitis [Unknown]
  - Hypersensitivity [Unknown]
